FAERS Safety Report 5785979-8 (Version None)
Quarter: 2008Q2

REPORT INFORMATION
  Report Type: 
  Country: None (occurrence: None)
  Receive Date: 20080624
  Receipt Date: 20080612
  Transmission Date: 20081010
  Serious: Yes (Hospitalization)
  Sender: FDA-Public Use
  Company Number: PHHY2008FR10840

PATIENT
  Sex: Male
  Weight: 93 kg

DRUGS (27)
  1. GLIVEC [Suspect]
     Dosage: 600 MG/DAY
     Route: 048
     Dates: end: 20080518
  2. METHOTREXATE (NGX) [Suspect]
     Dosage: UNK
     Route: 042
     Dates: start: 20080225, end: 20080225
  3. METHOTREXATE (NGX) [Suspect]
     Dosage: UNK
     Route: 042
     Dates: start: 20080326, end: 20080326
  4. METHOTREXATE (NGX) [Suspect]
     Dosage: 8600 MG/DAY
     Dates: start: 20080509, end: 20080509
  5. VINCRISTINE (NGX) [Suspect]
     Dosage: UNK
     Route: 042
     Dates: start: 20080225, end: 20080225
  6. VINCRISTINE (NGX) [Suspect]
     Dosage: 2 MG/DAY
     Route: 042
     Dates: start: 20080509, end: 20080509
  7. VINCRISTINE (NGX) [Suspect]
     Dosage: 2 MG/DAY
     Route: 042
     Dates: start: 20080514, end: 20080514
  8. ENDOXAN [Suspect]
     Dosage: UNK
     Route: 042
     Dates: start: 20080225, end: 20080225
  9. ENDOXAN [Suspect]
     Dosage: 5 X 344 MG
     Route: 042
     Dates: start: 20080510, end: 20080512
  10. ARACYTINE [Suspect]
     Dosage: UNK
     Route: 042
     Dates: start: 20080225, end: 20080225
  11. ARACYTINE [Suspect]
     Dosage: UNK
     Route: 042
     Dates: start: 20080418, end: 20080418
  12. BACTRIM [Suspect]
     Dosage: UNK
     Route: 048
     Dates: start: 20080515, end: 20080518
  13. DEXAMETHASONE TAB [Concomitant]
     Dosage: UNK
     Route: 042
     Dates: start: 20080225, end: 20080225
  14. DEXAMETHASONE TAB [Concomitant]
     Dosage: UNK
     Route: 042
     Dates: start: 20080326, end: 20080326
  15. DEXAMETHASONE TAB [Concomitant]
     Dosage: UNK
     Route: 042
     Dates: start: 20080418, end: 20080418
  16. DEXAMETHASONE TAB [Concomitant]
     Dosage: UNK
     Route: 042
     Dates: start: 20080509, end: 20080509
  17. ASPARAGINASE [Concomitant]
     Dosage: UNK
     Dates: start: 20080418, end: 20080418
  18. ASPARAGINASE [Concomitant]
     Dosage: 43000 IU/DAY
     Dates: start: 20080513, end: 20080514
  19. VINDESINE [Concomitant]
     Dosage: UNK
     Route: 042
     Dates: start: 20080326, end: 20080326
  20. IFOSFAMIDE [Concomitant]
     Dosage: UNK
     Route: 042
     Dates: start: 20080326, end: 20080326
  21. SOLU-MEDROL [Concomitant]
     Dosage: UNK
     Dates: start: 20080509, end: 20080509
  22. MESNA [Concomitant]
     Dosage: 120 MG, QID
     Dates: start: 20080510, end: 20080512
  23. OMEPRAZOLE [Concomitant]
     Dosage: UNK
     Dates: start: 20080515
  24. SPASFON [Concomitant]
     Dosage: UNK
     Dates: start: 20080515
  25. XYLOCAINE [Concomitant]
     Dosage: UNK
     Route: 050
     Dates: start: 20080515
  26. SKENAN [Concomitant]
     Dosage: UNK
     Dates: start: 20080516
  27. MORPHINE [Concomitant]
     Dosage: UNK
     Dates: start: 20080516

REACTIONS (16)
  - ALANINE AMINOTRANSFERASE INCREASED [None]
  - ASPARTATE AMINOTRANSFERASE INCREASED [None]
  - BLOOD CREATININE INCREASED [None]
  - CHEILITIS [None]
  - CYTOLYTIC HEPATITIS [None]
  - DERMATITIS BULLOUS [None]
  - FEBRILE BONE MARROW APLASIA [None]
  - GASTRIC MUCOSAL LESION [None]
  - HYPERNATRAEMIA [None]
  - HYPERTENSION [None]
  - MUCOSAL INFLAMMATION [None]
  - NIKOLSKY'S SIGN [None]
  - PAIN OF SKIN [None]
  - RENAL FAILURE [None]
  - THROMBOCYTOPENIA [None]
  - TOXIC SKIN ERUPTION [None]
